FAERS Safety Report 8186205-5 (Version None)
Quarter: 2012Q1

REPORT INFORMATION
  Report Type: 
  Country: None (occurrence: None)
  Receive Date: 20120306
  Receipt Date: 20120302
  Transmission Date: 20120608
  Serious: No
  Sender: FDA-Public Use
  Company Number: US-PFIZER INC-2012056933

PATIENT
  Sex: Female

DRUGS (1)
  1. ALAVERT [Suspect]
     Dosage: UNK

REACTIONS (4)
  - BALANCE DISORDER [None]
  - UPPER RESPIRATORY TRACT CONGESTION [None]
  - FATIGUE [None]
  - HYPERSOMNIA [None]
